FAERS Safety Report 6970283-2 (Version None)
Quarter: 2010Q3

REPORT INFORMATION
  Report Type: 
  Country: None (occurrence: None)
  Receive Date: 20100908
  Receipt Date: 20100826
  Transmission Date: 20110219
  Serious: Yes (Other)
  Sender: FDA-Public Use
  Company Number: PHHY2010BB57120

PATIENT
  Age: 60 Year
  Sex: Female

DRUGS (2)
  1. ZOMETA [Suspect]
     Indication: PROPHYLAXIS
     Dosage: 4 MG/ 5 ML, EVERY 6 MONTHS
     Route: 042
  2. ARIMIDEX [Concomitant]

REACTIONS (1)
  - OSTEONECROSIS OF JAW [None]
